FAERS Safety Report 4640482-3 (Version None)
Quarter: 2005Q2

REPORT INFORMATION
  Report Type: 
  Country: None (occurrence: None)
  Receive Date: 20050419
  Receipt Date: 20050408
  Transmission Date: 20051028
  Serious: Yes (Other)
  Sender: FDA-Public Use
  Company Number: KII-2005-0015931

PATIENT
  Age: 18 Year
  Sex: Male

DRUGS (3)
  1. OXYCONTIN [Suspect]
     Dosage: INHALATION
     Route: 055
  2. ACETAMINOPHEN AND OXYCODONE HCL [Suspect]
     Dosage: ORAL
     Route: 048
  3. COCAINE (COCAINE0 [Suspect]

REACTIONS (6)
  - DYSARTHRIA [None]
  - INCORRECT ROUTE OF DRUG ADMINISTRATION [None]
  - LOSS OF CONSCIOUSNESS [None]
  - POLYSUBSTANCE ABUSE [None]
  - SOMNOLENCE [None]
  - TACHYCARDIA [None]
